FAERS Safety Report 5721908-0 (Version None)
Quarter: 2008Q2

REPORT INFORMATION
  Report Type: 
  Country: None (occurrence: None)
  Receive Date: 20080429
  Receipt Date: 20080417
  Transmission Date: 20081010
  Serious: Yes (Other)
  Sender: FDA-Public Use
  Company Number: US-PFIZER INC-2008015656

PATIENT
  Sex: Male
  Weight: 81.8 kg

DRUGS (4)
  1. CHANTIX [Suspect]
     Indication: SMOKING CESSATION THERAPY
  2. VENLAFAXINE HYDROCHLORIDE [Concomitant]
     Route: 048
  3. AMBIEN [Concomitant]
     Route: 048
  4. KLONOPIN [Concomitant]
     Route: 048

REACTIONS (4)
  - ABNORMAL DREAMS [None]
  - BENIGN NEOPLASM [None]
  - DRY MOUTH [None]
  - GYNAECOMASTIA [None]
